FAERS Safety Report 4942671-7 (Version None)
Quarter: 2006Q1

REPORT INFORMATION
  Report Type: 
  Country: None (occurrence: None)
  Receive Date: 20060309
  Receipt Date: 20060303
  Transmission Date: 20060701
  Serious: Yes (Death, Life-Threatening, Hospitalization)
  Sender: FDA-Public Use
  Company Number: 2006EN000076

PATIENT
  Age: 66 Year
  Sex: Male

DRUGS (6)
  1. ABELCET [Suspect]
     Indication: CANDIDIASIS
  2. CASPOFUNGIN (CASPOFUNGIN) [Suspect]
     Indication: CANDIDIASIS
     Dosage: 50 MG;
  3. FLUCONAZOLE (FLUCONAZOLE (FLUCONAZOLE) [Suspect]
     Indication: CANDIDIASIS
  4. FLUCONAZOLE (FLUCONAZOLE (FLUCONAZOLE) [Suspect]
     Indication: CANDIDIASIS
  5. AMPHOTERICIN B LIPOSOMAL (BEING QUERIED) [Suspect]
     Indication: CANDIDIASIS
  6. AMPHOTERICIN B [Suspect]
     Indication: CANDIDIASIS

REACTIONS (3)
  - ASPERGILLOSIS [None]
  - CHOLESTASIS [None]
  - CONDITION AGGRAVATED [None]
